FAERS Safety Report 10580753 (Version 1)
Quarter: 2014Q4

REPORT INFORMATION
  Report Type: Report from Study
  Country: US (occurrence: US)
  Receive Date: 20141113
  Receipt Date: 20141113
  Transmission Date: 20150529
  Serious: Yes (Other)
  Sender: FDA-Public Use
  Company Number: US-AMGEN-USASL2014086509

PATIENT
  Sex: Female

DRUGS (2)
  1. PREDNISONE. [Concomitant]
     Active Substance: PREDNISONE
  2. NPLATE [Suspect]
     Active Substance: ROMIPLOSTIM
     Indication: IMMUNE THROMBOCYTOPENIC PURPURA
     Route: 065

REACTIONS (8)
  - Heart rate increased [Unknown]
  - Arthralgia [Unknown]
  - Muscular weakness [Unknown]
  - Headache [Unknown]
  - Therapeutic response decreased [Unknown]
  - Platelet count decreased [Unknown]
  - Asthenia [Unknown]
  - Paraesthesia [Unknown]
